FAERS Safety Report 6402747-4 (Version None)
Quarter: 2009Q4

REPORT INFORMATION
  Report Type: 
  Country: None (occurrence: None)
  Receive Date: 20091013
  Receipt Date: 20091001
  Transmission Date: 20100525
  Serious: Yes (Death, Disabling)
  Sender: FDA-Public Use
  Company Number: 88391

PATIENT
  Sex: Male

DRUGS (1)
  1. PAMIDRONATE DISODIUM [Suspect]

REACTIONS (1)
  - OSTEONECROSIS [None]
